FAERS Safety Report 5765531-0 (Version None)
Quarter: 2008Q2

REPORT INFORMATION
  Report Type: 
  Country: None (occurrence: None)
  Receive Date: 20080611
  Receipt Date: 20080606
  Transmission Date: 20081010
  Serious: Yes (Hospitalization, Disabling, Other)
  Sender: FDA-Public Use
  Company Number: US-MERCK-0704USA01517

PATIENT
  Age: 68 Year
  Sex: Female

DRUGS (4)
  1. FOSAMAX [Suspect]
     Indication: OSTEOPOROSIS
     Route: 048
     Dates: start: 20000927, end: 20010101
  2. FOSAMAX [Suspect]
     Route: 048
     Dates: start: 20010327, end: 20030101
  3. FOSAMAX [Suspect]
     Route: 048
     Dates: end: 20040101
  4. PREDNISONE [Concomitant]
     Route: 065

REACTIONS (45)
  - ACUTE MYOCARDIAL INFARCTION [None]
  - ANAEMIA [None]
  - ANXIETY [None]
  - ARTHROPATHY [None]
  - ATRIAL FIBRILLATION [None]
  - BUNDLE BRANCH BLOCK RIGHT [None]
  - CARDIAC FAILURE CONGESTIVE [None]
  - CARDIAC MURMUR [None]
  - CERVICAL SPINAL STENOSIS [None]
  - CHEST PAIN [None]
  - CORONARY ARTERY DISEASE [None]
  - DEAFNESS [None]
  - DECUBITUS ULCER [None]
  - DEEP VEIN THROMBOSIS [None]
  - DEPRESSION [None]
  - DEVICE FAILURE [None]
  - DISLOCATION OF JOINT PROSTHESIS [None]
  - DIZZINESS [None]
  - DRUG ADMINISTRATION ERROR [None]
  - DYSPNOEA [None]
  - EAR INFECTION [None]
  - FALL [None]
  - GINGIVITIS [None]
  - GLOSSITIS [None]
  - GLOSSODYNIA [None]
  - HEAD INJURY [None]
  - HIP FRACTURE [None]
  - HUMERUS FRACTURE [None]
  - INJURY [None]
  - LEFT ATRIAL DILATATION [None]
  - MITRAL VALVE INCOMPETENCE [None]
  - NECK INJURY [None]
  - OSTEOMYELITIS [None]
  - OSTEONECROSIS [None]
  - PNEUMONIA [None]
  - RASH [None]
  - RIB FRACTURE [None]
  - SINUS TACHYCARDIA [None]
  - SPINAL CORD INJURY [None]
  - STAPHYLOCOCCAL INFECTION [None]
  - TACHYCARDIA [None]
  - TONGUE DRY [None]
  - UPPER RESPIRATORY TRACT INFECTION [None]
  - URINARY TRACT INFECTION [None]
  - WHITE BLOOD CELL COUNT INCREASED [None]
